FAERS Safety Report 11301617 (Version 1)
Quarter: 2015Q3

REPORT INFORMATION
  Report Type: Spontaneous
  Country: US (occurrence: US)
  Receive Date: 20150722
  Receipt Date: 20150722
  Transmission Date: 20151125
  Serious: No
  Sender: FDA-Public Use
  Company Number: US-ELI_LILLY_AND_COMPANY-US200908006443

PATIENT
  Age: 61 Year
  Sex: Male

DRUGS (17)
  1. HUMATROPE [Suspect]
     Active Substance: SOMATROPIN
  2. OMEPRAZOLE. [Concomitant]
     Active Substance: OMEPRAZOLE
  3. DIFLUCAN [Concomitant]
     Active Substance: FLUCONAZOLE
  4. POTASSIUM [Concomitant]
     Active Substance: POTASSIUM
  5. NOVOLIN R [Concomitant]
     Active Substance: INSULIN HUMAN
  6. LANTUS [Concomitant]
     Active Substance: INSULIN GLARGINE
  7. QUINAPRIL [Concomitant]
     Active Substance: QUINAPRIL\QUINAPRIL HYDROCHLORIDE
  8. METOPROLOL [Concomitant]
     Active Substance: METOPROLOL
  9. TRICOR [Concomitant]
     Active Substance: FENOFIBRATE
  10. SYNTHROID [Concomitant]
     Active Substance: LEVOTHYROXINE SODIUM
  11. FLOMAX [Concomitant]
     Active Substance: TAMSULOSIN HYDROCHLORIDE
  12. VITAMIN B12 [Concomitant]
     Active Substance: CYANOCOBALAMIN
  13. BYETTA [Concomitant]
     Active Substance: EXENATIDE
  14. LOPID [Concomitant]
     Active Substance: GEMFIBROZIL
  15. GLUCOPHAGE [Concomitant]
     Active Substance: METFORMIN HYDROCHLORIDE
  16. LASIX [Concomitant]
     Active Substance: FUROSEMIDE
  17. ALLOPURINOL. [Concomitant]
     Active Substance: ALLOPURINOL

REACTIONS (4)
  - Blood glucose increased [Recovered/Resolved]
  - Nephrolithiasis [Recovered/Resolved]
  - Cataract [Recovered/Resolved]
  - Joint injury [Unknown]

NARRATIVE: CASE EVENT DATE: 200805
